FAERS Safety Report 6891377-6 (Version None)
Quarter: 2010Q3

REPORT INFORMATION
  Report Type: 
  Country: None (occurrence: None)
  Receive Date: 20100731
  Receipt Date: 20070424
  Transmission Date: 20110219
  Serious: No
  Sender: FDA-Public Use
  Company Number: US-PFIZER INC-2007017026

PATIENT
  Age: 45 Year
  Sex: Male

DRUGS (1)
  1. DEPO-MEDROL [Suspect]
     Indication: ARTHRALGIA
     Route: 030
     Dates: start: 20070221

REACTIONS (3)
  - PHOTOSENSITIVITY REACTION [None]
  - RASH [None]
  - SUNBURN [None]
